FAERS Safety Report 7353777-X (Version None)
Quarter: 2011Q1

REPORT INFORMATION
  Report Type: 
  Country: None (occurrence: None)
  Receive Date: 20110310
  Receipt Date: 20110310
  Transmission Date: 20110831
  Serious: No
  Sender: FDA-Public Use
  Company Number: None

PATIENT
  Sex: Female
  Weight: 76.2043 kg

DRUGS (1)
  1. CRESTOR [Suspect]
     Indication: BLOOD CHOLESTEROL INCREASED
     Dosage: 10 MG X 1 DAY

REACTIONS (15)
  - VISION BLURRED [None]
  - LOSS OF CONSCIOUSNESS [None]
  - PETECHIAE [None]
  - DEPRESSION [None]
  - INSOMNIA [None]
  - ACTIVITIES OF DAILY LIVING IMPAIRED [None]
  - CONFUSIONAL STATE [None]
  - PERSONALITY CHANGE [None]
  - FALL [None]
  - BLOOD TRIGLYCERIDES INCREASED [None]
  - BLOOD GLUCOSE INCREASED [None]
  - FEELING ABNORMAL [None]
  - ABDOMINAL DISTENSION [None]
  - WEIGHT INCREASED [None]
  - IMPAIRED WORK ABILITY [None]
